FAERS Safety Report 14669550 (Version 1)
Quarter: 2018Q1

REPORT INFORMATION
  Report Type: Report from Study
  Country: None (occurrence: CH)
  Receive Date: 20180322
  Receipt Date: 20180322
  Transmission Date: 20180509
  Serious: Yes (Hospitalization)
  Sender: FDA-Public Use
  Company Number: CH-ABBVIE-18K-151-2293733-00

PATIENT
  Sex: Male

DRUGS (1)
  1. DUODOPA [Suspect]
     Active Substance: CARBIDOPA\LEVODOPA
     Indication: PARKINSON^S DISEASE
     Dosage: MD: 7.0ML, CONTINUOUS RATE DAY 5.1ML/H, AND NIGHT 4.4ML/H, ED: 2.0ML?24TH THERAPY
     Route: 050
     Dates: start: 20160215

REACTIONS (1)
  - Tremor [Recovered/Resolved]
